FAERS Safety Report 6940286-2 (Version None)
Quarter: 2010Q3

REPORT INFORMATION
  Report Type: 
  Country: None (occurrence: None)
  Receive Date: 20100825
  Receipt Date: 20100812
  Transmission Date: 20110219
  Serious: Yes (Other)
  Sender: FDA-Public Use
  Company Number: PHHY2010US53678

PATIENT
  Sex: Female

DRUGS (13)
  1. TEGRETOL-XR [Suspect]
     Dosage: 200 MG, UNK
     Dates: start: 19960101
  2. VALTURNA [Concomitant]
     Dosage: UNK,UNK
  3. AMLODIPINE BESYLATE [Concomitant]
     Dosage: UNK,UNK
  4. CARBIDOPA + LEVODOPA [Concomitant]
     Dosage: 25 MG,UNK
  5. CLONIDINE [Concomitant]
     Dosage: UNK,UNK
  6. EPLERENONE [Concomitant]
     Dosage: UNK,UNK
  7. FUROSEMIDE [Concomitant]
     Dosage: UNK,UNK
  8. LABETALOL HCL [Concomitant]
     Dosage: UNK,UNK
  9. SYNTHROID [Concomitant]
     Dosage: UNK,UNK
  10. MINOXIDIL [Concomitant]
     Dosage: UNK,UNK
  11. OMEPRAZOLE [Concomitant]
     Dosage: UNK,UNK
  12. POTASSIUM CHLORIDE [Concomitant]
     Dosage: UNK,UNK
  13. PREMARIN [Concomitant]
     Dosage: UNK,UNK

REACTIONS (1)
  - PARKINSON'S DISEASE [None]
